FAERS Safety Report 16373799 (Version 3)
Quarter: 2019Q2

REPORT INFORMATION
  Report Type: Spontaneous
  Country: US (occurrence: US)
  Receive Date: 20190530
  Receipt Date: 20190605
  Transmission Date: 20190711
  Serious: Yes (Other)
  Sender: FDA-Public Use
  Company Number: US-PFIZER INC-2019225038

PATIENT
  Age: 45 Year
  Sex: Female

DRUGS (10)
  1. CYCLOPHOSPHAMIDE. [Concomitant]
     Active Substance: CYCLOPHOSPHAMIDE
     Indication: CUTANEOUS T-CELL LYMPHOMA
     Dosage: UNK, CYCLIC (CVP)
  2. CYCLOPHOSPHAMIDE. [Concomitant]
     Active Substance: CYCLOPHOSPHAMIDE
     Dosage: UNK, (CYCLIC FIVE CYCLES OF CVP PLUS PLD)
  3. VINCRISTINE [Concomitant]
     Active Substance: VINCRISTINE
     Indication: CUTANEOUS T-CELL LYMPHOMA
     Dosage: UNK, CYCLIC (CVP)
  4. VINCRISTINE [Concomitant]
     Active Substance: VINCRISTINE
     Dosage: UNK, CYCLIC (FIVE CYCLES OF CVP PLUS PLD)
  5. PREDNISONE. [Concomitant]
     Active Substance: PREDNISONE
     Dosage: UNK, CYCLIC (FIVE CYCLES OF CVP PLUS PLD)
  6. DOXORUBICIN HCL [Suspect]
     Active Substance: DOXORUBICIN HYDROCHLORIDE
     Dosage: UNK, CYCLIC (BRIEFLY RESUMING PEGYLATED LIPOSOMAL DOXORUBICIN)
  7. DOXORUBICIN HCL [Suspect]
     Active Substance: DOXORUBICIN HYDROCHLORIDE
     Indication: CUTANEOUS T-CELL LYMPHOMA
     Dosage: UNK, CYCLIC (DOXORUBICIN, 3 CYCLES)
  8. DOXORUBICIN HCL [Suspect]
     Active Substance: DOXORUBICIN HYDROCHLORIDE
     Dosage: UNK, CYCLIC (PEGYLATED LIPOSOMAL DOXORUBICIN (34 CYCLES))
  9. PREDNISONE. [Concomitant]
     Active Substance: PREDNISONE
     Indication: CUTANEOUS T-CELL LYMPHOMA
     Dosage: UNK, CYCLIC (CVP)
  10. DOXORUBICIN HCL [Suspect]
     Active Substance: DOXORUBICIN HYDROCHLORIDE
     Dosage: 20 MG/M2, CYCLIC  (EVERY 2 WEEKS; PEGYLATED LIPOSOMAL DOXORUBICIN)

REACTIONS (5)
  - Squamous cell carcinoma of the oral cavity [Unknown]
  - Squamous cell carcinoma of skin [Unknown]
  - Stomatitis [Unknown]
  - Second primary malignancy [Unknown]
  - Palmar-plantar erythrodysaesthesia syndrome [Unknown]
